FAERS Safety Report 10657823 (Version 1)
Quarter: 2014Q4

REPORT INFORMATION
  Report Type: Spontaneous
  Country: US (occurrence: None)
  Receive Date: 20141216
  Receipt Date: 20141216
  Transmission Date: 20150529
  Serious: Yes (Other)
  Sender: FDA-Public Use
  Company Number: None

PATIENT
  Sex: Male

DRUGS (1)
  1. OMNITROPE [Suspect]
     Active Substance: SOMATROPIN
     Indication: DWARFISM
     Route: 058
     Dates: start: 20110706

REACTIONS (7)
  - Psychomotor hyperactivity [None]
  - Fatigue [None]
  - Syncope [None]
  - Asthenia [None]
  - Metabolic disorder [None]
  - Pollakiuria [None]
  - Blood glucose increased [None]
